FAERS Safety Report 10754629 (Version 1)
Quarter: 2015Q1

REPORT INFORMATION
  Report Type: Spontaneous
  Country: US (occurrence: None)
  Receive Date: 20150130
  Receipt Date: 20150130
  Transmission Date: 20150721
  Serious: Yes (Other)
  Sender: FDA-Public Use
  Company Number: None

PATIENT
  Age: 16 Year
  Sex: Male
  Weight: 56.7 kg

DRUGS (1)
  1. TAMIFLU [Suspect]
     Active Substance: OSELTAMIVIR PHOSPHATE
     Indication: INFLUENZA
     Route: 048
     Dates: start: 20141225, end: 20141225

REACTIONS (7)
  - Confusional state [None]
  - Nausea [None]
  - Fear [None]
  - Hallucination [None]
  - Slow response to stimuli [None]
  - Loss of consciousness [None]
  - Staring [None]

NARRATIVE: CASE EVENT DATE: 20141225
